FAERS Safety Report 10663375 (Version 3)
Quarter: 2015Q1

REPORT INFORMATION
  Report Type: Spontaneous
  Country: US (occurrence: US)
  Receive Date: 20141218
  Receipt Date: 20150211
  Transmission Date: 20150720
  Serious: No
  Sender: FDA-Public Use
  Company Number: US-GLAXOSMITHKLINE-A1079354A

PATIENT

DRUGS (1)
  1. LAMICTAL [Suspect]
     Active Substance: LAMOTRIGINE
     Indication: BIPOLAR DISORDER
     Dosage: INITIAL DOSE STRENGTH OF 25 MG100 MG, STARTED 30 AUGUST 2011200 MG, STARTED 21 DECEMBER 2011
     Route: 065
     Dates: start: 20110630

REACTIONS (1)
  - Fall [Unknown]
